FAERS Safety Report 5519001-5 (Version None)
Quarter: 2007Q4

REPORT INFORMATION
  Report Type: 
  Country: None (occurrence: None)
  Receive Date: 20071114
  Receipt Date: 20071114
  Transmission Date: 20080405
  Serious: Yes (Disabling, Other)
  Sender: FDA-Public Use
  Company Number: None

PATIENT
  Age: 37 Year
  Sex: Male
  Weight: 98.8842 kg

DRUGS (7)
  1. METHYLPREDNISOLONE 4MG TAB [Suspect]
     Indication: BRONCHOSPASM
     Dosage: 4MG TAB DOSEPAK PO
     Route: 048
     Dates: start: 20071110, end: 20071113
  2. LEXAPRO [Concomitant]
  3. KLONOPIN [Concomitant]
  4. LOPRESSOR [Concomitant]
  5. MEDROL [Concomitant]
  6. SINGULAIR HS [Concomitant]
  7. FLOVENT [Concomitant]

REACTIONS (7)
  - ABNORMAL DREAMS [None]
  - ANXIETY [None]
  - CONDITION AGGRAVATED [None]
  - DEHYDRATION [None]
  - NIGHTMARE [None]
  - ORTHOSTATIC HYPOTENSION [None]
  - PANIC ATTACK [None]
